FAERS Safety Report 13466073 (Version 2)
Quarter: 2017Q2

REPORT INFORMATION
  Report Type: Spontaneous
  Country: US (occurrence: US)
  Receive Date: 20170421
  Receipt Date: 20170515
  Transmission Date: 20170830
  Serious: Yes (Other)
  Sender: FDA-Public Use
  Company Number: US-PFIZER INC-2017172526

PATIENT
  Age: 54 Year
  Sex: Male

DRUGS (1)
  1. RELPAX [Suspect]
     Active Substance: ELETRIPTAN HYDROBROMIDE
     Indication: HEADACHE
     Dosage: 40 MG, UNK

REACTIONS (9)
  - Malaise [Unknown]
  - Hyperacusis [Unknown]
  - Crying [Unknown]
  - Migraine [Not Recovered/Not Resolved]
  - Condition aggravated [Not Recovered/Not Resolved]
  - Bedridden [Unknown]
  - Photophobia [Unknown]
  - Nausea [Unknown]
  - Pain [Not Recovered/Not Resolved]
